FAERS Safety Report 7026586-9 (Version None)
Quarter: 2010Q4

REPORT INFORMATION
  Report Type: 
  Country: None (occurrence: None)
  Receive Date: 20101004
  Receipt Date: 20100928
  Transmission Date: 20110411
  Serious: Yes (Other)
  Sender: FDA-Public Use
  Company Number: DE-PFIZER INC-2010068971

PATIENT
  Age: 59 Year
  Sex: Female
  Weight: 100 kg

DRUGS (4)
  1. DIFLUCAN [Suspect]
     Indication: RESPIRATORY MONILIASIS
     Dosage: 200 MG, 2X/DAY
     Route: 048
     Dates: start: 20100503, end: 20100503
  2. DIFLUCAN [Suspect]
     Dosage: 200 MG, 1X/DAY
     Route: 048
     Dates: start: 20100504, end: 20100504
  3. DIFLUCAN [Suspect]
     Dosage: 50 MG, 1X/DAY
     Route: 048
     Dates: start: 20100505, end: 20100514
  4. ALPHA LIPOIC ACID [Concomitant]
     Indication: POLYNEUROPATHY
     Dosage: UNK

REACTIONS (8)
  - ASTHENIA [None]
  - BURNING SENSATION [None]
  - HYPOAESTHESIA [None]
  - MUSCLE SPASMS [None]
  - MYALGIA [None]
  - PAIN [None]
  - PARAESTHESIA [None]
  - POLYNEUROPATHY [None]
